FAERS Safety Report 21424499 (Version 2)
Quarter: 2025Q2

REPORT INFORMATION
  Report Type: Report from Study
  Country: US (occurrence: US)
  Receive Date: 20221007
  Receipt Date: 20250626
  Transmission Date: 20250716
  Serious: Yes (Hospitalization, Other)
  Sender: MERCK SHARP & DOHME LLC
  Company Number: US-009507513-1902USA005735

PATIENT
  Sex: Female

DRUGS (14)
  1. JANUVIA [Suspect]
     Active Substance: SITAGLIPTIN PHOSPHATE
     Indication: Diabetes mellitus management
     Route: 048
     Dates: start: 2022
  2. JANUVIA [Suspect]
     Active Substance: SITAGLIPTIN PHOSPHATE
     Indication: Diabetes mellitus management
     Route: 048
     Dates: start: 2011, end: 2012
  3. JANUVIA [Suspect]
     Active Substance: SITAGLIPTIN PHOSPHATE
     Indication: Diabetes mellitus management
     Dosage: ONE TABLET EVERY DAY
     Route: 048
  4. TRULICITY [Suspect]
     Active Substance: DULAGLUTIDE
     Dates: start: 202208
  5. TYLENOL [Concomitant]
     Active Substance: ACETAMINOPHEN
  6. PRAVASTATIN [Concomitant]
     Active Substance: PRAVASTATIN
  7. GLIMEPIRIDE [Concomitant]
     Active Substance: GLIMEPIRIDE
  8. LEVOTHYROXINE [Concomitant]
     Active Substance: LEVOTHYROXINE
  9. DIAZEPAM [Concomitant]
     Active Substance: DIAZEPAM
  10. ATENOLOL [Concomitant]
     Active Substance: ATENOLOL
  11. DILTIAZEM [Concomitant]
     Active Substance: DILTIAZEM
     Dates: start: 2011
  12. CARTIA XT [Concomitant]
     Active Substance: DILTIAZEM HYDROCHLORIDE
  13. POTASSIUM CHLORIDE [Concomitant]
     Active Substance: POTASSIUM CHLORIDE
  14. SYNTHROID [Concomitant]
     Active Substance: LEVOTHYROXINE SODIUM

REACTIONS (14)
  - Blood pressure fluctuation [Unknown]
  - Presyncope [Unknown]
  - Blood potassium abnormal [Recovered/Resolved]
  - Lung neoplasm malignant [Recovered/Resolved]
  - Loss of consciousness [Recovered/Resolved]
  - Loss of consciousness [Recovered/Resolved]
  - Blood pressure fluctuation [Recovered/Resolved]
  - Blood potassium decreased [Recovered/Resolved]
  - Swelling [Recovered/Resolved]
  - Blood glucose increased [Recovered/Resolved]
  - Brain fog [Recovered/Resolved]
  - Dizziness [Recovered/Resolved]
  - Malaise [Recovered/Resolved]
  - Urticaria [Recovered/Resolved]

NARRATIVE: CASE EVENT DATE: 20120101
